FAERS Safety Report 8483025-9 (Version None)
Quarter: 2012Q3

REPORT INFORMATION
  Report Type: 
  Country: None (occurrence: None)
  Receive Date: 20120702
  Receipt Date: 20120626
  Transmission Date: 20120928
  Serious: Yes (Other)
  Sender: FDA-Public Use
  Company Number: JP-PFIZER INC-2012154022

PATIENT
  Age: 78 Year
  Sex: Male

DRUGS (8)
  1. LYRICA [Suspect]
     Dosage: 25 MG A DAY BEFORE BEDTIME
     Route: 048
  2. ZOLPIDEM [Concomitant]
     Dosage: UNK
     Route: 048
  3. JANUVIA [Concomitant]
     Dosage: UNK
     Route: 048
  4. SERMION [Concomitant]
     Dosage: UNK
     Route: 048
  5. AMARYL [Concomitant]
     Dosage: UNK
     Route: 048
  6. METFORMIN HCL [Concomitant]
     Dosage: UNK
     Route: 048
  7. LYRICA [Suspect]
     Indication: SPINAL LIGAMENT OSSIFICATION
     Dosage: 75 MG AT MORNING AND 25 MG BEFORE BEDTIME
     Route: 048
  8. LENDORMIN [Concomitant]
     Dosage: UNK
     Route: 048

REACTIONS (2)
  - SOMNOLENCE [None]
  - ROAD TRAFFIC ACCIDENT [None]
